APPROVED DRUG PRODUCT: HALOPERIDOL
Active Ingredient: HALOPERIDOL LACTATE
Strength: EQ 5MG BASE/ML
Dosage Form/Route: INJECTABLE;INJECTION
Application: A076774 | Product #001
Applicant: GLAND PHARMA LTD
Approved: Aug 25, 2004 | RLD: No | RS: No | Type: DISCN